FAERS Safety Report 9305725 (Version 1)
Quarter: 2013Q2

REPORT INFORMATION
  Report Type: Spontaneous
  Country: US (occurrence: None)
  Receive Date: 20130522
  Receipt Date: 20130522
  Transmission Date: 20140414
  Serious: Yes (Other)
  Sender: FDA-Public Use
  Company Number: None

PATIENT
  Age: 54 Year
  Sex: Female

DRUGS (1)
  1. DEPO-MEDROL [Suspect]
     Dates: start: 20130131, end: 20130131

REACTIONS (4)
  - Local swelling [None]
  - Neuralgia [None]
  - Skin discolouration [None]
  - Headache [None]
